FAERS Safety Report 8944407 (Version 1)
Quarter: 2012Q4

REPORT INFORMATION
  Report Type: 
  Country: US (occurrence: US)
  Receive Date: 20121204
  Receipt Date: 20121204
  Transmission Date: 20130627
  Serious: No
  Sender: FDA-Public Use
  Company Number: US-AMGEN-USASP2012068204

PATIENT
  Age: 6 Year
  Sex: Male

DRUGS (2)
  1. ENBREL [Suspect]
     Indication: JUVENILE ARTHRITIS
     Dosage: 17.5 mg, qwk
     Dates: start: 20121019
  2. METHOTREXATE [Concomitant]
     Dosage: 0.5 ml, qwk
     Dates: start: 20121019

REACTIONS (5)
  - Tenderness [Not Recovered/Not Resolved]
  - Rash erythematous [Not Recovered/Not Resolved]
  - Rash papular [Not Recovered/Not Resolved]
  - Rash pruritic [Not Recovered/Not Resolved]
  - Skin lesion [Not Recovered/Not Resolved]
